FAERS Safety Report 15286025 (Version 1)
Quarter: 2018Q3

REPORT INFORMATION
  Report Type: Spontaneous
  Country: FR (occurrence: FR)
  Receive Date: 20180816
  Receipt Date: 20180816
  Transmission Date: 20181010
  Serious: Yes (Other)
  Sender: FDA-Public Use
  Company Number: FR-TEVA-2018-FR-944120

PATIENT
  Age: 72 Year
  Sex: Female

DRUGS (1)
  1. OXALIPLATINE TEVA 5 MG/ML, SOLUTION ? DILUER POUR PERFUSION [Suspect]
     Active Substance: OXALIPLATIN
     Indication: COLON CANCER
     Dosage: NON RENSEIGN?E
     Route: 042
     Dates: start: 20180716, end: 20180716

REACTIONS (3)
  - Dyspnoea [Recovered/Resolved]
  - Hypersensitivity [Recovered/Resolved]
  - Diarrhoea [Recovered/Resolved]

NARRATIVE: CASE EVENT DATE: 20180716
